FAERS Safety Report 8441145 (Version 6)
Quarter: 2012Q4

REPORT INFORMATION
  Report Type: 
  Country: US (occurrence: US)
  Receive Date: 20120305
  Receipt Date: 20121107
  Transmission Date: 20130627
  Serious: Yes (Hospitalization, Other)
  Sender: FDA-Public Use
  Company Number: US-009507513-1203USA00310

PATIENT

DRUGS (6)
  1. FOSAMAX [Suspect]
     Indication: PROPHYLAXIS
     Dosage: 70 mg, qw
     Route: 048
     Dates: start: 200108, end: 200808
  2. ALENDRONATE SODIUM [Suspect]
     Indication: PROPHYLAXIS
     Dosage: 70 mg, UNK
     Route: 048
     Dates: start: 200811, end: 201109
  3. EVISTA [Concomitant]
     Dosage: 60 mg, UNK
     Route: 048
     Dates: start: 20010730, end: 20111212
  4. ONE-A-DAY WOMEN^S [Concomitant]
     Dosage: UNK
     Dates: start: 1990
  5. NEXIUM [Concomitant]
     Indication: GASTROOESOPHAGEAL REFLUX DISEASE
     Dosage: UNK
     Dates: start: 1995
  6. ATENOLOL [Concomitant]
     Indication: HYPERTENSION
     Dosage: UNK
     Dates: start: 1995

REACTIONS (30)
  - Femur fracture [Recovered/Resolved]
  - Knee arthroplasty [Unknown]
  - Arthropathy [Unknown]
  - Haemorrhagic anaemia [Unknown]
  - Delirium [Unknown]
  - Subarachnoid haemorrhage [Unknown]
  - Device malfunction [Unknown]
  - Pancreatitis acute [Unknown]
  - Cholecystitis chronic [Unknown]
  - Cholecystectomy [Unknown]
  - Osteoarthritis [Unknown]
  - Oedema peripheral [Unknown]
  - Hallucination [Recovered/Resolved]
  - Low turnover osteopathy [Unknown]
  - Epicondylitis [Unknown]
  - Tooth disorder [Unknown]
  - Depression [Unknown]
  - Anxiety [Unknown]
  - Hyperlipidaemia [Unknown]
  - Adverse event [Unknown]
  - Fall [Unknown]
  - Intervertebral disc degeneration [Unknown]
  - Transient ischaemic attack [Unknown]
  - Hypertensive heart disease [Unknown]
  - Cerebral ischaemia [Unknown]
  - Venous angioma of brain [Unknown]
  - Renal atrophy [Unknown]
  - Aortic arteriosclerosis [Unknown]
  - Pulmonary mass [Unknown]
  - Overdose [Unknown]
